FAERS Safety Report 22040747 (Version 1)
Quarter: 2023Q1

REPORT INFORMATION
  Report Type: Spontaneous
  Country: US (occurrence: US)
  Receive Date: 20230227
  Receipt Date: 20230227
  Transmission Date: 20230418
  Serious: Yes (Death)
  Sender: FDA-Public Use
  Company Number: US-PFIZER INC-202300047579

PATIENT
  Age: 69 Year
  Sex: Female

DRUGS (1)
  1. MILRINONE [Suspect]
     Active Substance: MILRINONE
     Indication: Cardiac failure
     Dosage: UNK (ROUTE IS THROUGH A CENTRAL LINE AND PICC)
     Route: 042
     Dates: start: 202211

REACTIONS (2)
  - Hepatic failure [Fatal]
  - Product use issue [Unknown]

NARRATIVE: CASE EVENT DATE: 20221101
